FAERS Safety Report 7170110-7 (Version None)
Quarter: 2010Q4

REPORT INFORMATION
  Report Type: 
  Country: None (occurrence: None)
  Receive Date: 20101217
  Receipt Date: 20101202
  Transmission Date: 20110411
  Serious: Yes (Other)
  Sender: FDA-Public Use
  Company Number: US-ROCHE-724651

PATIENT
  Sex: Male
  Weight: 59 kg

DRUGS (6)
  1. ACCUTANE [Suspect]
     Indication: ACNE
     Route: 048
     Dates: start: 20031016, end: 20031120
  2. ACCUTANE [Suspect]
     Route: 048
     Dates: start: 20031202, end: 20040114
  3. ACCUTANE [Suspect]
     Route: 048
     Dates: start: 20040204, end: 20040408
  4. ACCUTANE [Suspect]
     Route: 048
     Dates: start: 20070323, end: 20070419
  5. ISOTRETINOIN [Suspect]
     Indication: ACNE
     Dosage: GENERIC ACCUTANE
     Route: 065
     Dates: start: 20031121, end: 20031125
  6. ADDERALL 10 [Concomitant]

REACTIONS (20)
  - ACNE [None]
  - ANAEMIA [None]
  - ANAL ABSCESS [None]
  - ANAL FISSURE [None]
  - ARTHRITIS [None]
  - BLOOD TRIGLYCERIDES INCREASED [None]
  - CONVULSION [None]
  - CROHN'S DISEASE [None]
  - DEAFNESS [None]
  - DRY SKIN [None]
  - ECZEMA [None]
  - FISTULA [None]
  - GASTROINTESTINAL INJURY [None]
  - HEADACHE [None]
  - INFLAMMATORY BOWEL DISEASE [None]
  - INTESTINAL HAEMORRHAGE [None]
  - INTESTINAL OBSTRUCTION [None]
  - JOINT SPRAIN [None]
  - RECTAL ABSCESS [None]
  - TREMOR [None]
